FAERS Safety Report 15183750 (Version 1)
Quarter: 2018Q3

REPORT INFORMATION
  Report Type: Spontaneous
  Country: US (occurrence: US)
  Receive Date: 20180723
  Receipt Date: 20180723
  Transmission Date: 20181010
  Serious: Yes (Other)
  Sender: FDA-Public Use
  Company Number: US-MYLANLABS-2018M1054200

PATIENT
  Age: 4 Year
  Sex: Male

DRUGS (2)
  1. HEPARIN [Suspect]
     Active Substance: HEPARIN SODIUM
     Indication: PROPHYLAXIS
     Route: 050
  2. SODIUM CHLORIDE. [Suspect]
     Active Substance: SODIUM CHLORIDE
     Indication: PROPHYLAXIS

REACTIONS (3)
  - Peripheral ischaemia [Recovered/Resolved]
  - Incorrect drug administration rate [Recovered/Resolved]
  - Peripheral nerve injury [Recovered/Resolved]
